FAERS Safety Report 20821959 (Version 1)
Quarter: 2022Q2

REPORT INFORMATION
  Report Type: Report from Study
  Country: US (occurrence: US)
  Receive Date: 20220512
  Receipt Date: 20220512
  Transmission Date: 20220721
  Serious: No
  Sender: FDA-Public Use
  Company Number: US-BRISTOL-MYERS SQUIBB COMPANY-2022-035659

PATIENT
  Age: 58 Year
  Sex: Female
  Weight: 103.87 kg

DRUGS (1)
  1. ZEPOSIA [Suspect]
     Active Substance: OZANIMOD HYDROCHLORIDE
     Indication: Colitis ulcerative
     Dates: start: 20220226

REACTIONS (3)
  - Illness [Unknown]
  - Muscle spasms [Unknown]
  - Diarrhoea [Unknown]
